FAERS Safety Report 11623252 (Version 1)
Quarter: 2015Q4

REPORT INFORMATION
  Report Type: Spontaneous
  Country: US (occurrence: US)
  Receive Date: 20151013
  Receipt Date: 20151013
  Transmission Date: 20160304
  Serious: No
  Sender: FDA-Public Use
  Company Number: US-JNJFOC-20150111671

PATIENT
  Age: 4 Year
  Sex: Female
  Weight: 12.7 kg

DRUGS (1)
  1. APAP [Suspect]
     Active Substance: ACETAMINOPHEN
     Indication: ACCIDENTAL EXPOSURE TO PRODUCT

REACTIONS (2)
  - Accidental exposure to product by child [Unknown]
  - Accidental overdose [None]

NARRATIVE: CASE EVENT DATE: 20140723
